FAERS Safety Report 18080583 (Version 7)
Quarter: 2021Q4

REPORT INFORMATION
  Report Type: Spontaneous
  Country: CA (occurrence: CA)
  Receive Date: 20200728
  Receipt Date: 20211201
  Transmission Date: 20220303
  Serious: Yes (Other)
  Sender: FDA-Public Use
  Company Number: CA-AMGEN-CANSP2020020455

PATIENT
  Sex: Male

DRUGS (19)
  1. PREVNAR 13 [Suspect]
     Active Substance: PNEUMOCOCCAL 13-VALENT CONJUGATE VACCINE
     Indication: Immunisation
     Dosage: 0.5 ML, SINGLE
     Route: 030
  2. ENBREL [Suspect]
     Active Substance: ETANERCEPT
     Indication: Rheumatoid arthritis
     Dosage: 50 MILLIGRAM, QWK
     Route: 058
  3. LEUCOVORIN CALCIUM [Suspect]
     Active Substance: LEUCOVORIN CALCIUM
     Dosage: 1.0 DOSAGE FORM, QWK
     Route: 065
  4. LIDOCAINE HYDROCHLORIDE\METHYLPREDNISOLONE ACETATE [Suspect]
     Active Substance: LIDOCAINE HYDROCHLORIDE\METHYLPREDNISOLONE ACETATE
     Dosage: UNK
     Route: 014
  5. METHOTREXATE SODIUM [Suspect]
     Active Substance: METHOTREXATE SODIUM
     Indication: Rheumatoid arthritis
     Dosage: 15 MILLIGRAM, QWK
     Route: 058
  6. METHOTREXATE SODIUM [Suspect]
     Active Substance: METHOTREXATE SODIUM
     Indication: Rheumatoid arthritis
     Dosage: 15 MILLIGRAM, QWK
     Route: 048
  7. SULFASALAZINE [Suspect]
     Active Substance: SULFASALAZINE
     Indication: Rheumatoid arthritis
     Dosage: UNK
     Route: 065
  8. ACTEMRA [Suspect]
     Active Substance: TOCILIZUMAB
     Dosage: 162 MILLIGRAM, QWK
     Route: 065
  9. PREDNISONE [Suspect]
     Active Substance: PREDNISONE
     Dosage: 1 MG
     Route: 065
  10. ARAVA [Suspect]
     Active Substance: LEFLUNOMIDE
     Indication: Rheumatoid arthritis
     Dosage: UNK
     Route: 065
  11. AZATHIOPRINE SODIUM [Suspect]
     Active Substance: AZATHIOPRINE SODIUM
     Indication: Rheumatoid arthritis
     Dosage: 200 MILLIGRAM, QD
     Route: 048
  12. AZATHIOPRINE [Suspect]
     Active Substance: AZATHIOPRINE
     Indication: Rheumatoid arthritis
     Dosage: 200 MG, 1X/DAY
     Route: 048
  13. HUMIRA [Suspect]
     Active Substance: ADALIMUMAB
     Indication: Rheumatoid arthritis
     Dosage: 40 MG (1 EVERY 2 WEEKS)
     Route: 058
  14. KETOPROFEN [Suspect]
     Active Substance: KETOPROFEN
     Dosage: UNK UNK, QID
     Route: 061
  15. KETOPROFEN [Suspect]
     Active Substance: KETOPROFEN
     Dosage: UNK (4 EVERY 1 DAYS)
     Route: 061
  16. ORENCIA [Suspect]
     Active Substance: ABATACEPT
     Dosage: UNK
     Route: 042
  17. PLAQUENIL [Suspect]
     Active Substance: HYDROXYCHLOROQUINE SULFATE
     Indication: Rheumatoid arthritis
     Dosage: 400 MILLIGRAM, QD
     Route: 058
  18. RITUXIMAB [Suspect]
     Active Substance: RITUXIMAB
     Dosage: 1 G, UNK
     Route: 042
  19. IMURAN [Suspect]
     Active Substance: AZATHIOPRINE
     Indication: Rheumatoid arthritis
     Dosage: 200 MG, 1X/DAY
     Route: 048

REACTIONS (7)
  - Drug ineffective [Unknown]
  - Arthralgia [Unknown]
  - Drug intolerance [Unknown]
  - Joint swelling [Unknown]
  - Contraindicated product administered [Unknown]
  - Off label use [Unknown]
  - Product use issue [Unknown]
